FAERS Safety Report 21200011 (Version 97)
Quarter: 2024Q3

REPORT INFORMATION
  Report Type: Report from Study
  Country: CO (occurrence: CO)
  Receive Date: 20220811
  Receipt Date: 20240905
  Transmission Date: 20241017
  Serious: Yes (Hospitalization, Other)
  Sender: TAKEDA
  Company Number: CO-TAKEDA-2022TUS050243

PATIENT
  Age: 3 Year
  Sex: Male
  Weight: 20 kg

DRUGS (13)
  1. IDURSULFASE [Suspect]
     Active Substance: IDURSULFASE
     Indication: Mucopolysaccharidosis II
     Dosage: 12 MILLIGRAM, 1/WEEK
     Route: 042
     Dates: start: 20220712
  2. IDURSULFASE [Suspect]
     Active Substance: IDURSULFASE
     Dosage: 11.25 MILLIGRAM, 1/WEEK
     Route: 042
     Dates: start: 20220721
  3. IDURSULFASE [Suspect]
     Active Substance: IDURSULFASE
     Dosage: 12 MILLIGRAM, 1/WEEK
     Route: 042
     Dates: start: 20220722
  4. IDURSULFASE [Suspect]
     Active Substance: IDURSULFASE
     Dosage: 10 MILLIGRAM, 1/WEEK
     Route: 042
     Dates: start: 20221006
  5. IDURSULFASE [Suspect]
     Active Substance: IDURSULFASE
     Dosage: 9 MILLIGRAM, 1/WEEK
     Route: 042
  6. IDURSULFASE [Suspect]
     Active Substance: IDURSULFASE
     Dosage: 10 MILLIGRAM
     Route: 042
  7. IDURSULFASE [Suspect]
     Active Substance: IDURSULFASE
     Dosage: 10.2 MILLIGRAM
     Route: 050
  8. IDURSULFASE [Suspect]
     Active Substance: IDURSULFASE
     Dosage: 10.2 MILLIGRAM
     Route: 042
  9. IDURSULFASE [Suspect]
     Active Substance: IDURSULFASE
     Dosage: 12 MILLIGRAM, 1/WEEK
     Route: 042
  10. VALPROIC ACID [Concomitant]
     Active Substance: VALPROIC ACID
     Dosage: UNK UNK, Q12H
     Route: 065
  11. CLONIDINE [Concomitant]
     Active Substance: CLONIDINE
     Dosage: 150 MILLIGRAM, QD
     Route: 065
  12. DESLORATADINE [Concomitant]
     Active Substance: DESLORATADINE
     Dosage: UNK
     Route: 065
  13. HYDROCORTISONE [Concomitant]
     Active Substance: HYDROCORTISONE\HYDROCORTISONE ACETATE
     Indication: Premedication
     Dosage: UNK
     Route: 065

REACTIONS (75)
  - Type I hypersensitivity [Recovered/Resolved]
  - Tonsillitis [Not Recovered/Not Resolved]
  - Seizure [Recovered/Resolved]
  - Pyrexia [Not Recovered/Not Resolved]
  - Drug hypersensitivity [Unknown]
  - Oxygen saturation decreased [Unknown]
  - Incorrect dose administered [Unknown]
  - Inappropriate schedule of product administration [Unknown]
  - Product availability issue [Unknown]
  - Product dose omission issue [Unknown]
  - Product use issue [Unknown]
  - Wrong technique in product usage process [Unknown]
  - Hypersensitivity [Not Recovered/Not Resolved]
  - Cough [Recovered/Resolved]
  - Cyanosis [Unknown]
  - Erythema [Recovered/Resolved]
  - Hypotension [Unknown]
  - Malaise [Not Recovered/Not Resolved]
  - Otitis media [Recovering/Resolving]
  - Body temperature increased [Unknown]
  - Drug ineffective [Unknown]
  - Dysphagia [Unknown]
  - Dermatitis allergic [Not Recovered/Not Resolved]
  - Feeding disorder [Unknown]
  - Musculoskeletal stiffness [Unknown]
  - Physical abuse [Unknown]
  - Insurance issue [Unknown]
  - Device issue [Unknown]
  - Dyspnoea [Recovered/Resolved]
  - Rash [Recovered/Resolved]
  - Treatment noncompliance [Unknown]
  - Aggression [Unknown]
  - Psychomotor hyperactivity [Not Recovered/Not Resolved]
  - Oropharyngeal pain [Recovering/Resolving]
  - Discouragement [Not Recovered/Not Resolved]
  - Weight increased [Unknown]
  - Postictal state [Recovered/Resolved]
  - Nasal congestion [Not Recovered/Not Resolved]
  - Weight decreased [Unknown]
  - Productive cough [Not Recovered/Not Resolved]
  - Nasopharyngitis [Not Recovered/Not Resolved]
  - Eye irritation [Not Recovered/Not Resolved]
  - Rhinitis [Not Recovered/Not Resolved]
  - Rhinorrhoea [Not Recovered/Not Resolved]
  - Respiratory symptom [Recovered/Resolved]
  - Gastrointestinal disorder [Recovered/Resolved]
  - Crying [Not Recovered/Not Resolved]
  - Feeling abnormal [Not Recovered/Not Resolved]
  - Restlessness [Unknown]
  - Infusion site pain [Unknown]
  - Pain [Not Recovered/Not Resolved]
  - Irritability [Not Recovered/Not Resolved]
  - Agitation [Not Recovered/Not Resolved]
  - Poor venous access [Not Recovered/Not Resolved]
  - Screaming [Not Recovered/Not Resolved]
  - Puncture site pain [Not Recovered/Not Resolved]
  - Puncture site oedema [Not Recovered/Not Resolved]
  - Influenza like illness [Not Recovered/Not Resolved]
  - Muscle rigidity [Not Recovered/Not Resolved]
  - Hand deformity [Not Recovered/Not Resolved]
  - Influenza [Not Recovered/Not Resolved]
  - General physical health deterioration [Unknown]
  - Product prescribing error [Unknown]
  - Ear pruritus [Unknown]
  - Insomnia [Unknown]
  - Gastrointestinal injury [Not Recovered/Not Resolved]
  - Illness [Unknown]
  - Decreased activity [Unknown]
  - Gait disturbance [Unknown]
  - Decreased appetite [Unknown]
  - Body height increased [Unknown]
  - Ear infection [Unknown]
  - Diarrhoea [Not Recovered/Not Resolved]
  - Vomiting [Recovered/Resolved]
  - Nausea [Not Recovered/Not Resolved]

NARRATIVE: CASE EVENT DATE: 20220721
